FAERS Safety Report 7222958-8 (Version None)
Quarter: 2011Q1

REPORT INFORMATION
  Report Type: 
  Country: None (occurrence: None)
  Receive Date: 20110112
  Receipt Date: 20110105
  Transmission Date: 20110831
  Serious: Yes (Hospitalization, Other)
  Sender: FDA-Public Use
  Company Number: FR-PFIZER INC-2011007633

PATIENT
  Age: 68 Year
  Sex: Female

DRUGS (11)
  1. DIGOXINE [Suspect]
     Indication: ATRIAL FIBRILLATION
     Dosage: UNK
     Route: 048
     Dates: start: 20091101, end: 20091210
  2. CORDARONE [Suspect]
     Indication: ATRIAL FIBRILLATION
     Dosage: 200 MG, UNK
     Route: 048
     Dates: start: 20091101, end: 20091210
  3. LASIX [Concomitant]
  4. PULMICORT [Concomitant]
  5. SEROPRAM [Concomitant]
  6. IMOVANE [Concomitant]
  7. VERAPAMIL HYDROCHLORIDE [Concomitant]
  8. SINGULAIR [Concomitant]
  9. ARIXTRA [Concomitant]
  10. LEVOCETIRIZINE [Concomitant]
  11. AUGMENTIN '125' [Concomitant]

REACTIONS (5)
  - BRADYCARDIA [None]
  - TORSADE DE POINTES [None]
  - MULTIPLE MYELOMA [None]
  - VENTRICULAR TACHYCARDIA [None]
  - ELECTROCARDIOGRAM QT PROLONGED [None]
